FAERS Safety Report 16050931 (Version 1)
Quarter: 2019Q1

REPORT INFORMATION
  Report Type: Spontaneous
  Country: US (occurrence: US)
  Receive Date: 20190308
  Receipt Date: 20190308
  Transmission Date: 20190418
  Serious: No
  Sender: FDA-Public Use
  Company Number: US-TEVA-2019-US-1022102

PATIENT
  Age: 7 Year
  Sex: Male

DRUGS (1)
  1. QVAR [Suspect]
     Active Substance: BECLOMETHASONE DIPROPIONATE
     Indication: ASTHMA
     Dosage: 80 MICROGRAM DAILY; USING QVAR HFA SINCE HE WAS 2 YEARS OLD ?DOSAGE OF 40MCG, 2 PUFFS TWICE A DAY
     Route: 065

REACTIONS (1)
  - Fatigue [Unknown]
